FAERS Safety Report 9103362 (Version 2)
Quarter: 2013Q1

REPORT INFORMATION
  Report Type: Spontaneous
  Country: US (occurrence: US)
  Receive Date: 20130219
  Receipt Date: 20130326
  Transmission Date: 20140127
  Serious: Yes (Disabling)
  Sender: FDA-Public Use
  Company Number: US-SANOFI-AVENTIS-2013SA000065

PATIENT
  Age: 55 Year
  Sex: Female

DRUGS (2)
  1. AUBAGIO [Suspect]
     Indication: MULTIPLE SCLEROSIS
     Route: 048
     Dates: start: 201212, end: 20130212
  2. AUBAGIO [Suspect]
     Indication: MULTIPLE SCLEROSIS
     Route: 048
     Dates: start: 20130218

REACTIONS (9)
  - Muscular weakness [Not Recovered/Not Resolved]
  - Constipation [Unknown]
  - Asthenia [Not Recovered/Not Resolved]
  - Sensation of heaviness [Not Recovered/Not Resolved]
  - Joint stiffness [Not Recovered/Not Resolved]
  - Dizziness [Not Recovered/Not Resolved]
  - Abdominal discomfort [Unknown]
  - Nausea [Not Recovered/Not Resolved]
  - Alopecia [Unknown]
